FAERS Safety Report 9230174 (Version 2)
Quarter: 2013Q2

REPORT INFORMATION
  Report Type: Spontaneous
  Country: US (occurrence: None)
  Receive Date: 20130411
  Receipt Date: 20130531
  Transmission Date: 20140414
  Serious: Yes (Hospitalization)
  Sender: FDA-Public Use
  Company Number: JPI-P-030452

PATIENT
  Age: 42 Year
  Sex: Female
  Weight: 81.65 kg

DRUGS (8)
  1. XYREM [Suspect]
     Indication: NARCOLEPSY
     Dosage: 4.5 GM (2.25 GM, 2 IN 1 D), ORAL
     Route: 048
     Dates: start: 20130201, end: 2013
  2. GABAPENTIN [Concomitant]
  3. DEXMETHYLPHENIDATE HYDROCHLORIDE [Concomitant]
  4. DULOXETINE HYDROCHLORIDE [Concomitant]
  5. ENALAPRIL [Concomitant]
  6. PANCRELIPASE (AMYLASE; LIPASE; PROTEASE) [Concomitant]
  7. DARIFENACIN HYDROBROMIDE [Concomitant]
  8. OXYCODONE [Concomitant]

REACTIONS (5)
  - Suicide attempt [None]
  - Asthenia [None]
  - Depression [None]
  - Anger [None]
  - Hypersomnia [None]
